FAERS Safety Report 6556997-7 (Version None)
Quarter: 2010Q1

REPORT INFORMATION
  Report Type: 
  Country: None (occurrence: None)
  Receive Date: 20100126
  Receipt Date: 20100113
  Transmission Date: 20100710
  Serious: Yes (Hospitalization)
  Sender: FDA-Public Use
  Company Number: 2009AC000421

PATIENT
  Age: 48 Year
  Sex: Female

DRUGS (23)
  1. DIGOXIN [Suspect]
     Dosage: 0.25 MG; QD; PO
     Route: 048
     Dates: start: 20020101
  2. NOVOLIN [Concomitant]
  3. PREDNISONE [Concomitant]
  4. COMBIVENT [Concomitant]
  5. GLUCOTROL [Concomitant]
  6. FEOSOL [Concomitant]
  7. CIPRO [Concomitant]
  8. HUMULIN R [Concomitant]
  9. ASPIRIN [Concomitant]
  10. LOPRESSOR [Concomitant]
  11. LANTUS [Concomitant]
  12. LEVOTHYROXINE SODIUM [Concomitant]
  13. LORTAB [Concomitant]
  14. METPORMIN [Concomitant]
  15. ZOCOR [Concomitant]
  16. CLARITIN [Concomitant]
  17. METOPROLOL TARTRATE [Concomitant]
  18. DIOVAN [Concomitant]
  19. BUMEX [Concomitant]
  20. PULMICORT [Concomitant]
  21. ALTACE [Concomitant]
  22. PREVACID [Concomitant]
  23. NIASPAN [Concomitant]

REACTIONS (30)
  - CARDIAC FAILURE CONGESTIVE [None]
  - CARDIOACTIVE DRUG LEVEL INCREASED [None]
  - CORONARY ARTERY DISEASE [None]
  - DEPRESSION [None]
  - DIABETES MELLITUS [None]
  - DIABETIC NEUROPATHY [None]
  - DIABETIC RETINOPATHY [None]
  - DIARRHOEA [None]
  - ECONOMIC PROBLEM [None]
  - ENDOTRACHEAL INTUBATION COMPLICATION [None]
  - HYPERGLYCAEMIA [None]
  - HYPERTENSION [None]
  - HYPOTHYROIDISM [None]
  - IMPAIRED WORK ABILITY [None]
  - LARYNGEAL STENOSIS [None]
  - MULTIPLE INJURIES [None]
  - MYOCARDIAL INFARCTION [None]
  - NAUSEA [None]
  - NEPHROLITHIASIS [None]
  - OCCULT BLOOD POSITIVE [None]
  - PLEURAL EFFUSION [None]
  - POST PROCEDURAL COMPLICATION [None]
  - POST PROCEDURAL HAEMATOMA [None]
  - POSTOPERATIVE THORACIC PROCEDURE COMPLICATION [None]
  - RENAL FAILURE [None]
  - RENAL FUSION ANOMALY [None]
  - SEPSIS [None]
  - STAPHYLOCOCCAL MEDIASTINITIS [None]
  - SURGERY [None]
  - VOMITING [None]
